FAERS Safety Report 12288280 (Version 1)
Quarter: 2016Q2

REPORT INFORMATION
  Report Type: Spontaneous
  Country: IL (occurrence: IL)
  Receive Date: 20160420
  Receipt Date: 20160420
  Transmission Date: 20160815
  Serious: Yes (Other)
  Sender: FDA-Public Use
  Company Number: IL-APOPHARMA-2016AP007958

PATIENT
  Age: 20 Year
  Sex: Male

DRUGS (2)
  1. IDEBENONE [Concomitant]
     Active Substance: IDEBENONE
     Indication: FRIEDREICH^S ATAXIA
     Route: 065
  2. FERRIPROX [Suspect]
     Active Substance: DEFERIPRONE
     Indication: FRIEDREICH^S ATAXIA
     Dosage: 20 MG/KG, QD
     Route: 048

REACTIONS (1)
  - Leukopenia [Recovered/Resolved]
